FAERS Safety Report 11449758 (Version 1)
Quarter: 2015Q3

REPORT INFORMATION
  Report Type: Spontaneous
  Country: US (occurrence: US)
  Receive Date: 20150903
  Receipt Date: 20150903
  Transmission Date: 20151125
  Serious: No
  Sender: FDA-Public Use
  Company Number: US-ROCHE-1068963

PATIENT
  Sex: Male
  Weight: 80.36 kg

DRUGS (16)
  1. LORTAB [Concomitant]
     Active Substance: ACETAMINOPHEN\HYDROCODONE BITARTRATE
  2. AMITRIPTYLINE [Concomitant]
     Active Substance: AMITRIPTYLINE
  3. ISOSORBIDE. [Concomitant]
     Active Substance: ISOSORBIDE
  4. PROAIR HFA [Concomitant]
     Active Substance: ALBUTEROL SULFATE
  5. PEGASYS [Suspect]
     Active Substance: PEGINTERFERON ALFA-2A
     Indication: HEPATITIS C
     Route: 058
     Dates: start: 20101129, end: 20110325
  6. COPEGUS [Suspect]
     Active Substance: RIBAVIRIN
     Indication: HEPATITIS C
     Route: 048
     Dates: start: 20101129, end: 20110325
  7. MUPIROCIN OINTMENT [Concomitant]
     Active Substance: MUPIROCIN
  8. ALBUTEROL. [Concomitant]
     Active Substance: ALBUTEROL
  9. NADOLOL. [Concomitant]
     Active Substance: NADOLOL
  10. ASA [Concomitant]
     Active Substance: ASPIRIN
  11. IBUPROFEN. [Concomitant]
     Active Substance: IBUPROFEN
  12. DOXYCYCLINE. [Concomitant]
     Active Substance: DOXYCYCLINE
  13. FLUOXETINE [Concomitant]
     Active Substance: FLUOXETINE\FLUOXETINE HYDROCHLORIDE
  14. OMEPRAZOLE. [Concomitant]
     Active Substance: OMEPRAZOLE
  15. DULERA [Concomitant]
     Active Substance: FORMOTEROL FUMARATE DIHYDRATE\MOMETASONE FUROATE
  16. LEVOTHYROXINE. [Concomitant]
     Active Substance: LEVOTHYROXINE

REACTIONS (4)
  - Fatigue [Unknown]
  - Anaemia [Unknown]
  - Infected skin ulcer [Unknown]
  - Dyspnoea [Unknown]
